FAERS Safety Report 10227050 (Version 1)
Quarter: 2014Q2

REPORT INFORMATION
  Report Type: Spontaneous
  Country: US (occurrence: None)
  Receive Date: 20140606
  Receipt Date: 20140606
  Transmission Date: 20141212
  Serious: Yes (Other)
  Sender: FDA-Public Use
  Company Number: US-MDCO-14-00141

PATIENT
  Age: 64 Year
  Sex: Female

DRUGS (1)
  1. ANGIOMAX [Suspect]
     Indication: PERCUTANEOUS CORONARY INTERVENTION
     Route: 040
     Dates: start: 20140409, end: 20140409

REACTIONS (3)
  - Coagulation time prolonged [None]
  - Cardiac arrest [None]
  - Coronary artery thrombosis [None]
